FAERS Safety Report 24254780 (Version 2)
Quarter: 2024Q3

REPORT INFORMATION
  Report Type: Spontaneous
  Country: GB (occurrence: GB)
  Receive Date: 20240827
  Receipt Date: 20240909
  Transmission Date: 20241017
  Serious: Yes (Hospitalization, Other)
  Sender: PFIZER
  Company Number: GB-MLMSERVICE-20240814-PI161923-00270-2

PATIENT
  Age: 8 Year
  Sex: Female
  Weight: 20 kg

DRUGS (13)
  1. METHYLPREDNISOLONE SODIUM SUCCINATE [Suspect]
     Active Substance: METHYLPREDNISOLONE SODIUM SUCCINATE
     Indication: Hypertransaminasaemia
     Dosage: THE FIRST COURSE ON DAY 17 FOR 10 DAYS (2 MG/KG FOR 4 DAYS + 10 MG/KG FOR 6 DAYS)
     Route: 042
  2. METHYLPREDNISOLONE SODIUM SUCCINATE [Suspect]
     Active Substance: METHYLPREDNISOLONE SODIUM SUCCINATE
     Dosage: THE FIRST COURSE ON DAY 17 FOR 10 DAYS (2 MG/KG FOR 4 DAYS + 10 MG/KG FOR 6 DAYS)
     Route: 042
  3. METHYLPREDNISOLONE SODIUM SUCCINATE [Suspect]
     Active Substance: METHYLPREDNISOLONE SODIUM SUCCINATE
     Dosage: SECOND COURSE, WAS STARTED ON DAY 32
     Route: 042
  4. METHYLPREDNISOLONE SODIUM SUCCINATE [Suspect]
     Active Substance: METHYLPREDNISOLONE SODIUM SUCCINATE
     Dosage: THIRD COURSE, WAS STARTED ON DAY 38
     Route: 042
  5. METHYLPREDNISOLONE [Suspect]
     Active Substance: METHYLPREDNISOLONE
     Indication: Hypertransaminasaemia
     Dosage: ON DAY 27
     Route: 048
  6. PREDNISOLONE [Suspect]
     Active Substance: PREDNISOLONE
     Indication: Hypertransaminasaemia
     Dosage: UNK
  7. PREDNISOLONE [Suspect]
     Active Substance: PREDNISOLONE
     Indication: Adrenal suppression
     Dosage: ON DAY PRIOR TO OA INFUSION
     Route: 048
  8. PREDNISOLONE [Suspect]
     Active Substance: PREDNISOLONE
     Dosage: CONTINUED ON A LOW DOSE OF MAINTENANCE STEROIDS
  9. PREDNISOLONE [Suspect]
     Active Substance: PREDNISOLONE
     Dosage: SLOWLY WEANED
     Route: 048
  10. PREDNISOLONE [Suspect]
     Active Substance: PREDNISOLONE
     Dosage: DOSE INCREASED
     Route: 048
  11. VITAMIN D NOS [Concomitant]
     Active Substance: CHOLECALCIFEROL\ERGOCALCIFEROL
     Indication: Vitamin supplementation
     Dosage: UNK
  12. TACROLIMUS [Concomitant]
     Active Substance: TACROLIMUS
     Dosage: TITRATED (0.4MG-0.8 MG) BASED ON A TARGET RANGE OF 7 TO 9MICROGRAMS/L
  13. TACROLIMUS [Concomitant]
     Active Substance: TACROLIMUS
     Dosage: DISCONTINUED AT 30 WEEKS POST-OA

REACTIONS (3)
  - Traumatic fracture [Unknown]
  - Femur fracture [Unknown]
  - Off label use [Unknown]
